FAERS Safety Report 8609158-1 (Version None)
Quarter: 2012Q3

REPORT INFORMATION
  Report Type: 
  Country: None (occurrence: None)
  Receive Date: 20120808
  Receipt Date: 20120723
  Transmission Date: 20120928
  Serious: Yes (Hospitalization, Other)
  Sender: FDA-Public Use
  Company Number: 2012MA008995

PATIENT
  Age: 17 Year
  Sex: Female

DRUGS (1)
  1. HALOPERIDOL LACTATE [Suspect]
     Indication: SUICIDE ATTEMPT
     Dosage: 50 MG;X1;PO
     Route: 048

REACTIONS (10)
  - SINUS TACHYCARDIA [None]
  - TORTICOLLIS [None]
  - JOINT DISLOCATION [None]
  - SUICIDE ATTEMPT [None]
  - ANXIETY [None]
  - AGITATION [None]
  - DYSTONIA [None]
  - INCORRECT DOSE ADMINISTERED [None]
  - HYPOTENSION [None]
  - BODY TEMPERATURE INCREASED [None]
